FAERS Safety Report 14952793 (Version 1)
Quarter: 2018Q2

REPORT INFORMATION
  Report Type: Spontaneous
  Country: FR (occurrence: FR)
  Receive Date: 20180530
  Receipt Date: 20180530
  Transmission Date: 20180711
  Serious: Yes (Hospitalization, Other)
  Sender: FDA-Public Use
  Company Number: FR-MYLANLABS-2018M1034175

PATIENT
  Age: 32 Year
  Sex: Female
  Weight: 64 kg

DRUGS (3)
  1. MORPHINE [Concomitant]
     Active Substance: MORPHINE
     Indication: CAESAREAN SECTION
     Dosage: 100 ?G, TOTAL
     Route: 024
     Dates: start: 20151009
  2. SUFENTANIL [Concomitant]
     Active Substance: SUFENTANIL
     Indication: CAESAREAN SECTION
     Dosage: 2.5 ?G, TOTAL
     Route: 024
     Dates: start: 20151009
  3. BUPIVACAINE. [Suspect]
     Active Substance: BUPIVACAINE
     Indication: CAESAREAN SECTION
     Dosage: 10 MG, TOTAL (5 MG/ML)
     Route: 024
     Dates: start: 20151009, end: 20151009

REACTIONS (3)
  - Maternal exposure during delivery [Unknown]
  - No adverse event [Unknown]
  - Drug ineffective [Recovered/Resolved]

NARRATIVE: CASE EVENT DATE: 20151009
